FAERS Safety Report 8452566-2 (Version None)
Quarter: 2012Q2

REPORT INFORMATION
  Report Type: 
  Country: None (occurrence: None)
  Receive Date: 20120620
  Receipt Date: 20120521
  Transmission Date: 20120825
  Serious: No
  Sender: FDA-Public Use
  Company Number: US-VERTEX PHARMACEUTICALS INC.-AE-2012-005518

PATIENT
  Sex: Male
  Weight: 104.42 kg

DRUGS (7)
  1. PEGASYS [Concomitant]
     Indication: HEPATITIS C
     Route: 058
     Dates: start: 20120301
  2. VITAMIN B-12 [Concomitant]
     Indication: MEDICAL DIET
     Route: 048
  3. MULTI-VITAMIN [Concomitant]
     Indication: MEDICAL DIET
     Route: 048
  4. LISINOPRIL AND HYDROCHLOROTHIAZIDE [Concomitant]
     Indication: HYPERTENSION
     Route: 048
  5. RIBAVIRIN [Concomitant]
     Indication: HEPATITIS C
     Route: 048
     Dates: start: 20120302
  6. INCIVEK [Suspect]
     Indication: HEPATITIS C
     Route: 048
     Dates: start: 20120302
  7. CARVEDILOL [Concomitant]
     Indication: HYPERTENSION
     Route: 048

REACTIONS (7)
  - CHEST PAIN [None]
  - DIZZINESS [None]
  - ANAEMIA [None]
  - DYSPNOEA [None]
  - BLOOD PRESSURE DECREASED [None]
  - SKIN EXFOLIATION [None]
  - HEADACHE [None]
